FAERS Safety Report 21312557 (Version 1)
Quarter: 2022Q3

REPORT INFORMATION
  Report Type: Spontaneous
  Country: US (occurrence: None)
  Receive Date: 20220909
  Receipt Date: 20220909
  Transmission Date: 20221027
  Serious: No
  Sender: FDA-Public Use
  Company Number: US-ARIS GLOBAL-202207-1219

PATIENT
  Sex: Male

DRUGS (9)
  1. OXERVATE [Suspect]
     Active Substance: CENEGERMIN-BKBJ
     Indication: Corneal disorder
     Route: 047
     Dates: start: 20220623
  2. FISH OIL [Concomitant]
     Active Substance: FISH OIL
     Dosage: 100-160 MG
  3. JARDIANCE [Concomitant]
     Active Substance: EMPAGLIFLOZIN
  4. CHOLECALCIFEROL CRYSTALS [Concomitant]
  5. METFORMIN ER GASTRIC [Concomitant]
  6. VALACYCLOVIR [Concomitant]
     Active Substance: VALACYCLOVIR HYDROCHLORIDE
  7. ZIRGAN [Concomitant]
     Active Substance: GANCICLOVIR
     Dosage: GRAM
  8. PREDNISOLONE [Concomitant]
     Active Substance: PREDNISOLONE
     Dosage: 15 MG/5 ML
  9. ALPHAGAN P [Concomitant]
     Active Substance: BRIMONIDINE TARTRATE

REACTIONS (1)
  - Eye pain [Unknown]
